FAERS Safety Report 24782555 (Version 3)
Quarter: 2025Q2

REPORT INFORMATION
  Report Type: Spontaneous
  Country: JP (occurrence: JP)
  Receive Date: 20241227
  Receipt Date: 20250415
  Transmission Date: 20250717
  Serious: Yes (Life-Threatening, Hospitalization, Other)
  Sender: ALEXION PHARMACEUTICALS
  Company Number: JP-ASTRAZENECA-240145946_013120_P_1

PATIENT
  Age: 74 Year

DRUGS (9)
  1. DURVALUMAB [Suspect]
     Active Substance: DURVALUMAB
     Indication: Bile duct cancer
     Dosage: 1500 MILLIGRAM, Q3W
  2. GEMCITABINE [Concomitant]
     Active Substance: GEMCITABINE
     Indication: Bile duct cancer
     Route: 065
  3. GEMCITABINE [Concomitant]
     Active Substance: GEMCITABINE
     Route: 065
  4. GEMCITABINE [Concomitant]
     Active Substance: GEMCITABINE
     Route: 065
  5. GEMCITABINE [Concomitant]
     Active Substance: GEMCITABINE
     Route: 065
  6. CISPLATIN [Concomitant]
     Active Substance: CISPLATIN
     Indication: Bile duct cancer
     Route: 065
  7. CISPLATIN [Concomitant]
     Active Substance: CISPLATIN
     Route: 065
  8. CISPLATIN [Concomitant]
     Active Substance: CISPLATIN
     Route: 065
  9. CISPLATIN [Concomitant]
     Active Substance: CISPLATIN
     Route: 065

REACTIONS (4)
  - Obstructive airways disorder [Recovered/Resolved]
  - Immune-mediated myositis [Recovered/Resolved with Sequelae]
  - Myasthenia gravis [Recovered/Resolved]
  - Immune-mediated myocarditis [Unknown]
